FAERS Safety Report 5018308-8 (Version None)
Quarter: 2006Q2

REPORT INFORMATION
  Report Type: 
  Country: None (occurrence: None)
  Receive Date: 20060530
  Receipt Date: 20060516
  Transmission Date: 20061013
  Serious: Yes (Other)
  Sender: FDA-Public Use
  Company Number: USA-2005-0020859

PATIENT
  Age: 48 Year
  Sex: Female

DRUGS (21)
  1. OXYCODONE HCL [Suspect]
     Indication: PAIN
     Dosage: 50 MG, BID,
  2. OXYCODONE HCL [Concomitant]
  3. VIOXX [Concomitant]
  4. BUMEX [Concomitant]
  5. ZESTORETIC [Concomitant]
  6. PROZAC [Concomitant]
  7. TOPROL-XL [Concomitant]
  8. MIDRIN (DICHLORALPHENAZONE, ISOMETHEPTENE) [Concomitant]
  9. DIFLUNISAL [Concomitant]
  10. LISINOPRIL [Concomitant]
  11. WELLBUTRIN [Concomitant]
  12. NEXIUM [Concomitant]
  13. TRICOR [Concomitant]
  14. DETROL [Concomitant]
  15. ALBUTEROL [Concomitant]
  16. ATARAX [Concomitant]
  17. ULTRAM [Concomitant]
  18. TAGAMET [Concomitant]
  19. CELEBREX [Concomitant]
  20. GLUCOPHAGE [Concomitant]
  21. ZESTRIL [Concomitant]

REACTIONS (36)
  - ANXIETY [None]
  - ARTHRALGIA [None]
  - BRONCHITIS [None]
  - BURSITIS [None]
  - CHEST PAIN [None]
  - DELUSIONAL DISORDER, UNSPECIFIED TYPE [None]
  - DEPRESSION [None]
  - DERMATITIS ATOPIC [None]
  - DIARRHOEA [None]
  - DRUG DEPENDENCE [None]
  - DRUG INEFFECTIVE [None]
  - DRUG TOLERANCE [None]
  - DRUG WITHDRAWAL SYNDROME [None]
  - DYSPEPSIA [None]
  - DYSPNOEA [None]
  - DYSURIA [None]
  - EMOTIONAL DISTRESS [None]
  - EXPOSURE TO TOXIC AGENT [None]
  - FALL [None]
  - GASTROOESOPHAGEAL REFLUX DISEASE [None]
  - HYPERTENSION [None]
  - INJURY [None]
  - INTERVERTEBRAL DISC PROTRUSION [None]
  - JOINT INJURY [None]
  - MUSCLE STRAIN [None]
  - NAUSEA [None]
  - OBSESSIVE-COMPULSIVE DISORDER [None]
  - OEDEMA PERIPHERAL [None]
  - PAIN [None]
  - PARANOIA [None]
  - PHOTOPHOBIA [None]
  - PRURITUS [None]
  - RENAL FAILURE [None]
  - SINUSITIS [None]
  - THROMBOPHLEBITIS SUPERFICIAL [None]
  - UROSEPSIS [None]
